FAERS Safety Report 8318750-3 (Version None)
Quarter: 2012Q2

REPORT INFORMATION
  Report Type: 
  Country: None (occurrence: None)
  Receive Date: 20120427
  Receipt Date: 20090929
  Transmission Date: 20120825
  Serious: No
  Sender: FDA-Public Use
  Company Number: US-TEVA-2009009687

PATIENT
  Sex: Female
  Weight: 81.72 kg

DRUGS (17)
  1. KLONOPIN [Concomitant]
     Dates: start: 20010101
  2. TRAZODONE HCL [Concomitant]
     Dates: start: 19790101
  3. NEXIUM [Concomitant]
     Dates: start: 20090619
  4. ADVAIR DISKUS 100/50 [Concomitant]
     Dates: start: 20070101
  5. ACIDOPHYLIS [Concomitant]
     Dates: start: 20060101
  6. DIVALPROEX SODIUM [Concomitant]
     Dates: start: 20090101
  7. GEODON [Concomitant]
     Dates: start: 20090101
  8. ATENOLOL [Concomitant]
     Dates: start: 20090428
  9. HYOSYAMINE [Concomitant]
     Dates: start: 20080101
  10. PROVIGIL [Concomitant]
     Dosage: 400 MILLIGRAM;
     Route: 048
     Dates: start: 20070101, end: 20090724
  11. NUVIGIL [Suspect]
     Indication: SOMNOLENCE
     Dosage: 500 MILLIGRAM;
     Route: 048
     Dates: start: 20090728, end: 20090803
  12. CYMBALTA [Concomitant]
     Dates: start: 20060101
  13. LEVOXYL [Concomitant]
     Dates: start: 19990101
  14. ALBUTEROL [Concomitant]
     Dates: start: 20070101
  15. VERAMYST [Concomitant]
     Route: 045
     Dates: start: 19760101
  16. LIPITOR [Concomitant]
     Dates: start: 20090706
  17. HYDROXYZINE [Concomitant]
     Dates: start: 20090101

REACTIONS (9)
  - DYSARTHRIA [None]
  - APHTHOUS STOMATITIS [None]
  - LIP SWELLING [None]
  - URINARY INCONTINENCE [None]
  - DYSPHONIA [None]
  - SWOLLEN TONGUE [None]
  - SPEECH DISORDER [None]
  - CHEILITIS [None]
  - DRUG PRESCRIBING ERROR [None]
